FAERS Safety Report 7301665-7 (Version None)
Quarter: 2011Q1

REPORT INFORMATION
  Report Type: 
  Country: None (occurrence: None)
  Receive Date: 20110218
  Receipt Date: 20110207
  Transmission Date: 20110831
  Serious: Yes (Other)
  Sender: FDA-Public Use
  Company Number: US-SANOFI-AVENTIS-2011SA007999

PATIENT
  Sex: Female

DRUGS (3)
  1. MULTAQ [Suspect]
     Indication: ATRIAL FIBRILLATION
     Route: 048
     Dates: start: 20100802
  2. DIGOXIN [Concomitant]
  3. SOTALOL HCL [Suspect]
     Route: 065
     Dates: start: 20080101, end: 20100804

REACTIONS (7)
  - NASOPHARYNGITIS [None]
  - ATRIAL FIBRILLATION [None]
  - TREMOR [None]
  - OFF LABEL USE [None]
  - DYSPNOEA [None]
  - COUGH [None]
  - OEDEMA PERIPHERAL [None]
